FAERS Safety Report 20179838 (Version 1)
Quarter: 2021Q4

REPORT INFORMATION
  Report Type: Spontaneous
  Country: FR (occurrence: FR)
  Receive Date: 20211214
  Receipt Date: 20211214
  Transmission Date: 20220303
  Serious: Yes (Hospitalization)
  Sender: FDA-Public Use
  Company Number: None

PATIENT
  Age: 84 Year
  Sex: Male

DRUGS (6)
  1. SILODOSIN [Suspect]
     Active Substance: SILODOSIN
     Indication: Inappropriate schedule of product administration
     Dosage: 8 MG, 1 TOTAL
     Route: 048
     Dates: start: 20211113, end: 20211113
  2. EPLERENONE [Suspect]
     Active Substance: EPLERENONE
     Indication: Inappropriate schedule of product administration
     Dosage: UNK
     Route: 065
     Dates: start: 20211113, end: 20211113
  3. FUROSEMIDE [Suspect]
     Active Substance: FUROSEMIDE
     Indication: Inappropriate schedule of product administration
     Dosage: UNK
     Route: 065
     Dates: start: 20211113, end: 20211113
  4. DIGOXIN [Suspect]
     Active Substance: DIGOXIN
     Indication: Inappropriate schedule of product administration
     Dosage: UNK
     Route: 065
     Dates: start: 20211113, end: 20211113
  5. LEVOTHYROXINE [Suspect]
     Active Substance: LEVOTHYROXINE
     Indication: Product used for unknown indication
     Dosage: 1 DOSAGE FORM,  1 TOTAL
     Route: 048
     Dates: start: 20211113, end: 20211113
  6. POTASSIUM CHLORIDE [Suspect]
     Active Substance: POTASSIUM CHLORIDE
     Indication: Inappropriate schedule of product administration
     Dosage: UNK
     Route: 065
     Dates: start: 20211113, end: 20211113

REACTIONS (2)
  - Inappropriate schedule of product administration [Recovered/Resolved]
  - Malaise [Recovered/Resolved]

NARRATIVE: CASE EVENT DATE: 20211113
